FAERS Safety Report 9178442 (Version 1)
Quarter: 2012Q4

REPORT INFORMATION
  Report Type: 
  Country: US (occurrence: US)
  Receive Date: 20121029
  Receipt Date: 20121029
  Transmission Date: 20130627
  Serious: No
  Sender: FDA-Public Use
  Company Number: US-AMGEN-USASP2012053738

PATIENT
  Age: 57 Year
  Sex: Male
  Weight: 68.03 kg

DRUGS (6)
  1. ENBREL [Suspect]
     Indication: PRODUCT USED FOR UNKNOWN INDICATION
     Dosage: 50 mg, qwk
     Route: 058
  2. BARACLUDE [Concomitant]
     Dosage: 0.5 mg, UNK
  3. MEDROL                             /00049601/ [Concomitant]
     Dosage: 04 mg, UNK
  4. OMEPRAZOLE [Concomitant]
     Dosage: 20 mg, UNK
  5. VITAMIN D3 [Concomitant]
     Dosage: 1000 IU, UNK
  6. TYLENOL PM EXTRA STRENGTH [Concomitant]

REACTIONS (1)
  - Seborrhoeic dermatitis [Unknown]
